FAERS Safety Report 5344139-5 (Version None)
Quarter: 2007Q2

REPORT INFORMATION
  Report Type: 
  Country: None (occurrence: None)
  Receive Date: 20070531
  Receipt Date: 20070531
  Transmission Date: 20071010
  Serious: Yes (Disabling, Other)
  Sender: FDA-Public Use
  Company Number: None

PATIENT
  Age: 47 Year
  Sex: Female
  Weight: 58.9676 kg

DRUGS (2)
  1. ADVAIR DISKUS 100/50 [Suspect]
     Indication: ASTHMA
     Dosage: ONE INHALATION TWICE A DAY INHAL
     Route: 055
     Dates: start: 20070310, end: 20070508
  2. ADVIAR DISKUS [Concomitant]

REACTIONS (13)
  - ARTHRALGIA [None]
  - BURNING SENSATION [None]
  - COAGULOPATHY [None]
  - CONTUSION [None]
  - DYSGEUSIA [None]
  - FATIGUE [None]
  - FEELING ABNORMAL [None]
  - FEELING HOT AND COLD [None]
  - HYPOAESTHESIA [None]
  - MOUTH ULCERATION [None]
  - PARAESTHESIA [None]
  - RASH [None]
  - RECTAL HAEMORRHAGE [None]
